FAERS Safety Report 8584944-5 (Version None)
Quarter: 2012Q3

REPORT INFORMATION
  Report Type: 
  Country: None (occurrence: None)
  Receive Date: 20120810
  Receipt Date: 20120731
  Transmission Date: 20120928
  Serious: Yes (Other)
  Sender: FDA-Public Use
  Company Number: BR-PFIZER INC-2012193176

PATIENT
  Age: 76 Year
  Sex: Female
  Weight: 103 kg

DRUGS (4)
  1. SERTRALINE [Concomitant]
     Indication: DEPRESSION
     Dosage: 1 DOSAGE FORMS, AS REQUIRED
     Route: 048
  2. DONAREN [Concomitant]
     Indication: DEPRESSION
     Dosage: 1 DF, UNK
     Route: 048
     Dates: start: 20070101
  3. INDERAL [Concomitant]
     Indication: DEPRESSION
     Dosage: 40 MG, UNK
     Route: 048
     Dates: start: 20070101
  4. PANTOPRAZOLE [Suspect]
     Indication: GASTROOESOPHAGEAL REFLUX DISEASE
     Dosage: 40 MG, 1X/DAY
     Route: 048
     Dates: start: 20120523, end: 20120621

REACTIONS (4)
  - TREMOR [None]
  - MALAISE [None]
  - HALLUCINATION [None]
  - CHILLS [None]
